FAERS Safety Report 17408665 (Version 1)
Quarter: 2020Q1

REPORT INFORMATION
  Report Type: Spontaneous
  Country: US (occurrence: US)
  Receive Date: 20200212
  Receipt Date: 20200212
  Transmission Date: 20200409
  Serious: Yes (Other)
  Sender: FDA-Public Use
  Company Number: US-VERTEX PHARMACEUTICALS-2020-002559

PATIENT
  Age: 52 Year
  Sex: Male
  Weight: 67 kg

DRUGS (22)
  1. LORATADINE. [Concomitant]
     Active Substance: LORATADINE
  2. HUMALOG [Concomitant]
     Active Substance: INSULIN LISPRO
  3. SODIUM CHLORIDE. [Concomitant]
     Active Substance: SODIUM CHLORIDE
  4. AZITHROMYCIN ANHYDROUS. [Concomitant]
     Active Substance: AZITHROMYCIN ANHYDROUS
  5. IBUPROFEN. [Concomitant]
     Active Substance: IBUPROFEN
  6. MELATONIN [Concomitant]
     Active Substance: MELATONIN
  7. CLEARLAX [Concomitant]
     Active Substance: POLYETHYLENE GLYCOL 3350
     Dosage: 17 GRAM
  8. VENTOLINE [SALBUTAMOL SULFATE] [Concomitant]
     Active Substance: ALBUTEROL SULFATE
  9. SELENIUM [Concomitant]
     Active Substance: SELENIUM
  10. CALCIUM MAGNESIUM + ZINC [CALCIUM CARBONATE;MAGNESIUM OXIDE;ZINC SULFA [Concomitant]
  11. TRIKAFTA [Suspect]
     Active Substance: ELEXACAFTOR\IVACAFTOR\TEZACAFTOR
     Indication: CYSTIC FIBROSIS
     Dosage: 2 TABL 100MG ELEXACAFTOR/ 50 MG TEZACAFTOR/ 75 MG IVACAFTOR AM; 1 TABLET 150 MG IVACAFTOR PM
     Route: 048
  12. CREON [Concomitant]
     Active Substance: PANCRELIPASE AMYLASE\PANCRELIPASE LIPASE\PANCRELIPASE PROTEASE
  13. OXYCODONE AND ACETAMINOPHEN [Concomitant]
     Active Substance: ACETAMINOPHEN\OXYCODONE HYDROCHLORIDE
  14. TOBI PODHALER [Concomitant]
     Active Substance: TOBRAMYCIN
     Dosage: 28 MG
  15. TRESIBA [Concomitant]
     Active Substance: INSULIN DEGLUDEC
  16. DOCUSATE SODIUM. [Concomitant]
     Active Substance: DOCUSATE SODIUM
  17. COLLAGEN [Concomitant]
     Active Substance: COLLAGEN
  18. OMEGA 3 [FISH OIL] [Concomitant]
     Active Substance: FISH OIL
  19. SENNA LEAF [Concomitant]
     Active Substance: SENNA LEAF
  20. CAYSTON [Concomitant]
     Active Substance: AZTREONAM
  21. ANASTROZOLE. [Concomitant]
     Active Substance: ANASTROZOLE
  22. TURMERIC [CURCUMA LONGA ROOT] [Concomitant]

REACTIONS (1)
  - Shoulder operation [Recovering/Resolving]

NARRATIVE: CASE EVENT DATE: 20191226
